FAERS Safety Report 17531099 (Version 3)
Quarter: 2021Q3

REPORT INFORMATION
  Report Type: Spontaneous
  Country: JP (occurrence: JP)
  Receive Date: 20200311
  Receipt Date: 20210827
  Transmission Date: 20211014
  Serious: Yes (Death, Hospitalization)
  Sender: FDA-Public Use
  Company Number: JP-ASTRAZENECA-2019SF81928

PATIENT
  Age: 78 Year
  Sex: Female
  Weight: 50 kg

DRUGS (5)
  1. CALONAL [Concomitant]
     Active Substance: ACETAMINOPHEN
     Indication: CANCER PAIN
     Route: 048
     Dates: start: 20180910, end: 20181121
  2. TAGRISSO [Suspect]
     Active Substance: OSIMERTINIB
     Indication: NON-SMALL CELL LUNG CANCER
     Route: 048
     Dates: start: 20180903, end: 20181210
  3. MAGMITT [Concomitant]
     Active Substance: MAGNESIUM OXIDE
     Indication: CONSTIPATION
     Route: 048
  4. ATORVASTATIN [Concomitant]
     Active Substance: ATORVASTATIN
     Indication: HYPERLIPIDAEMIA
     Route: 048
  5. BROTIZOLAM [Concomitant]
     Active Substance: BROTIZOLAM
     Indication: INSOMNIA
     Route: 048

REACTIONS (4)
  - Malignant neoplasm progression [Fatal]
  - Diarrhoea [Recovering/Resolving]
  - Radiation pneumonitis [Recovering/Resolving]
  - Lung disorder [Recovered/Resolved]

NARRATIVE: CASE EVENT DATE: 20180912
